FAERS Safety Report 9313506 (Version 2)
Quarter: 2013Q2

REPORT INFORMATION
  Report Type: Spontaneous
  Country: IT (occurrence: IT)
  Receive Date: 20130528
  Receipt Date: 20130621
  Transmission Date: 20140414
  Serious: Yes (Other)
  Sender: FDA-Public Use
  Company Number: PHHY2013IT051936

PATIENT
  Sex: Female

DRUGS (6)
  1. METOPROLOL [Suspect]
     Dosage: 1 DF DAILY
     Route: 048
     Dates: start: 20120311, end: 20130310
  2. GLYCERYL TRINITRATE [Suspect]
     Dosage: 1 DF DAILY
     Route: 062
     Dates: start: 20120311, end: 20130310
  3. CARVASIN [Suspect]
     Dosage: 1 DF, (5 MG) TOTAL
     Route: 060
     Dates: start: 20120310, end: 20130310
  4. DUOPLAVIN [Concomitant]
     Dosage: UNK UKN, UNK
  5. PANTOPRAZOLE [Concomitant]
  6. ATORVASTATIN [Concomitant]

REACTIONS (1)
  - Syncope [Recovering/Resolving]
